FAERS Safety Report 6227286-5 (Version None)
Quarter: 2009Q2

REPORT INFORMATION
  Report Type: 
  Country: None (occurrence: None)
  Receive Date: 20090612
  Receipt Date: 20090611
  Transmission Date: 20091009
  Serious: Yes (Life-Threatening, Hospitalization, Other)
  Sender: FDA-Public Use
  Company Number: JP-B.I. PHARMACEUTICALS,INC./RIDGEFIELD-2009-BP-07113NB

PATIENT
  Sex: Male
  Weight: 60 kg

DRUGS (8)
  1. MICARDIS [Suspect]
     Indication: HYPERTENSION
     Dosage: 20MG
     Route: 048
     Dates: start: 20060518
  2. GLUCOBAY [Concomitant]
     Dosage: 300MG
     Route: 048
     Dates: start: 20060629
  3. LIVALO [Concomitant]
     Dosage: 2MG
     Route: 048
     Dates: start: 20051020
  4. FAMOGAST [Concomitant]
     Indication: GASTRITIS
     Dosage: 20MG
     Route: 048
     Dates: start: 20080822
  5. ARTIST [Concomitant]
     Indication: HYPERTENSION
     Dosage: 5MG
     Route: 048
     Dates: start: 20080909
  6. TOFRANIL [Concomitant]
     Dosage: 20MG
     Route: 048
     Dates: start: 20080722
  7. ALPRAZOLAM [Concomitant]
     Indication: ANXIETY
     Dosage: .8MG
     Route: 048
     Dates: start: 20080722
  8. NOVORAPID [Concomitant]
     Dosage: 18U
     Route: 058
     Dates: start: 20060629

REACTIONS (1)
  - LUNG NEOPLASM MALIGNANT [None]
